FAERS Safety Report 17082610 (Version 1)
Quarter: 2019Q4

REPORT INFORMATION
  Report Type: Report from Study
  Country: US (occurrence: US)
  Receive Date: 20191127
  Receipt Date: 20191127
  Transmission Date: 20200122
  Serious: Yes (Death, Life-Threatening, Other)
  Sender: FDA-Public Use
  Company Number: US-BAYER-2019-209734

PATIENT
  Age: 51 Year
  Sex: Female

DRUGS (3)
  1. ACETAMINOPHEN. [Suspect]
     Active Substance: ACETAMINOPHEN
     Dosage: UNK
  2. VALPROIC ACID. [Interacting]
     Active Substance: VALPROIC ACID
  3. FENTANYL. [Suspect]
     Active Substance: FENTANYL

REACTIONS (8)
  - Hepatotoxicity [None]
  - Bradypnoea [None]
  - Respiratory depression [None]
  - Coma [None]
  - Hypotension [None]
  - Labelled drug-drug interaction medication error [None]
  - Toxicity to various agents [Fatal]
  - Depressed level of consciousness [None]
